FAERS Safety Report 19317250 (Version 3)
Quarter: 2021Q3

REPORT INFORMATION
  Report Type: Spontaneous
  Country: DE (occurrence: DE)
  Receive Date: 20210527
  Receipt Date: 20210721
  Transmission Date: 20211014
  Serious: Yes (Other)
  Sender: FDA-Public Use
  Company Number: DE-ALXN-A202106059

PATIENT
  Age: 72 Year
  Sex: Female

DRUGS (4)
  1. RIVAROXABAN [Concomitant]
     Active Substance: RIVAROXABAN
     Indication: ATRIAL FIBRILLATION
     Dosage: UNK
     Route: 048
  2. METOPROLOL. [Concomitant]
     Active Substance: METOPROLOL
     Indication: PRODUCT USED FOR UNKNOWN INDICATION
     Dosage: UNK
     Route: 065
  3. ONDEXXYA [Suspect]
     Active Substance: ANDEXANET ALFA
     Indication: HAEMORRHAGE INTRACRANIAL
     Dosage: 1760 MG, UNK (HIGH DOSE)
     Route: 065
     Dates: start: 20210514, end: 20210514
  4. RAMIPRIL. [Concomitant]
     Active Substance: RAMIPRIL
     Indication: PRODUCT USED FOR UNKNOWN INDICATION
     Dosage: 5 MG, BID
     Route: 065

REACTIONS (5)
  - Embolic stroke [Not Recovered/Not Resolved]
  - Ischaemia [Not Recovered/Not Resolved]
  - Peripheral artery occlusion [Unknown]
  - Monoplegia [Not Recovered/Not Resolved]
  - Aphasia [Not Recovered/Not Resolved]

NARRATIVE: CASE EVENT DATE: 20210514
